FAERS Safety Report 9553639 (Version 1)
Quarter: 2013Q3

REPORT INFORMATION
  Report Type: Spontaneous
  Country: AU (occurrence: AU)
  Receive Date: 20130925
  Receipt Date: 20130925
  Transmission Date: 20140515
  Serious: Yes (Other)
  Sender: FDA-Public Use
  Company Number: AU-ROCHE-1279549

PATIENT
  Age: 80 Year
  Sex: 0

DRUGS (2)
  1. XELODA [Suspect]
     Indication: PRODUCT USED FOR UNKNOWN INDICATION
     Route: 065
  2. AVASTIN [Concomitant]
     Route: 065

REACTIONS (2)
  - Disease recurrence [Unknown]
  - Metastasis [Unknown]
